FAERS Safety Report 4792390-5 (Version None)
Quarter: 2005Q4

REPORT INFORMATION
  Report Type: 
  Country: None (occurrence: None)
  Receive Date: 20051010
  Receipt Date: 20050928
  Transmission Date: 20060501
  Serious: Yes (Hospitalization)
  Sender: FDA-Public Use
  Company Number: JP-NOVOPROD-247328

PATIENT
  Sex: Female

DRUGS (1)
  1. INNOLET R CHU [Suspect]
     Indication: ILL-DEFINED DISORDER
     Dosage: 10 IU, TID

REACTIONS (1)
  - HYPOAESTHESIA [None]
